FAERS Safety Report 4828777-1 (Version None)
Quarter: 2005Q4

REPORT INFORMATION
  Report Type: 
  Country: None (occurrence: None)
  Receive Date: 20051014
  Receipt Date: 20050825
  Transmission Date: 20060501
  Serious: No
  Sender: FDA-Public Use
  Company Number: 2005SP002513

PATIENT
  Age: 55 Year
  Sex: Male
  Weight: 127.0072 kg

DRUGS (3)
  1. LUNESTA [Suspect]
     Indication: SLEEP APNOEA SYNDROME
     Dosage: 2 MG;HS;ORAL
     Route: 048
     Dates: start: 20050814
  2. VICODIN [Concomitant]
  3. OXYCONTIN [Concomitant]

REACTIONS (2)
  - DYSGEUSIA [None]
  - INSOMNIA [None]
